FAERS Safety Report 20357171 (Version 1)
Quarter: 2022Q1

REPORT INFORMATION
  Report Type: Spontaneous
  Country: FR (occurrence: FR)
  Receive Date: 20220120
  Receipt Date: 20220120
  Transmission Date: 20220424
  Serious: Yes (Congenital Anomaly, Other)
  Sender: FDA-Public Use
  Company Number: FR-ABBVIE-22K-056-4242207-00

PATIENT
  Sex: Male
  Weight: 3.91 kg

DRUGS (1)
  1. VALPROATE SODIUM [Suspect]
     Active Substance: VALPROATE SODIUM
     Indication: Maternal exposure timing unspecified
     Route: 064

REACTIONS (14)
  - Foetal anticonvulsant syndrome [Not Recovered/Not Resolved]
  - Auditory disorder [Unknown]
  - Hypermobility syndrome [Unknown]
  - Social (pragmatic) communication disorder [Unknown]
  - Behaviour disorder [Not Recovered/Not Resolved]
  - Hypotonia [Unknown]
  - Peroneal nerve palsy [Unknown]
  - Language disorder [Unknown]
  - Emotional disorder [Unknown]
  - Loss of personal independence in daily activities [Unknown]
  - Learning disorder [Unknown]
  - Developmental delay [Unknown]
  - Autism spectrum disorder [Not Recovered/Not Resolved]
  - Foetal exposure during pregnancy [Unknown]

NARRATIVE: CASE EVENT DATE: 20120101
